FAERS Safety Report 4393953-1 (Version None)
Quarter: 2004Q3

REPORT INFORMATION
  Report Type: 
  Country: None (occurrence: None)
  Receive Date: 20040702
  Receipt Date: 20040622
  Transmission Date: 20050211
  Serious: Yes (Other)
  Sender: FDA-Public Use
  Company Number: 2004220579AT

PATIENT
  Age: 58 Year
  Sex: Female

DRUGS (3)
  1. ZAVEDOS (IDARUBICIN HYDROCHLORIDE) POWDER, STERILE [Suspect]
     Indication: ACUTE MYELOID LEUKAEMIA
     Dosage: HIGH-DOSE,
  2. CYTARABINE [Suspect]
     Indication: ACUTE MYELOID LEUKAEMIA
  3. MITOXANTRONE [Concomitant]
     Indication: ACUTE MYELOID LEUKAEMIA

REACTIONS (2)
  - APHASIA [None]
  - ATAXIA [None]
